FAERS Safety Report 5451505-6 (Version None)
Quarter: 2007Q3

REPORT INFORMATION
  Report Type: 
  Country: None (occurrence: None)
  Receive Date: 20070913
  Receipt Date: 20070906
  Transmission Date: 20080115
  Serious: Yes (Other)
  Sender: FDA-Public Use
  Company Number: US-BAYER-200711996BCC

PATIENT
  Age: 63 Year
  Sex: Female
  Weight: 103 kg

DRUGS (3)
  1. ALEVE [Suspect]
     Indication: ARTHRALGIA
     Dosage: TOTAL DAILY DOSE: 440 MG  UNIT DOSE: 220 MG
     Route: 048
     Dates: start: 20070501, end: 20070611
  2. ATACAND [Concomitant]
     Dosage: TOTAL DAILY DOSE: 32 MG  UNIT DOSE: 32 MG
     Route: 048
  3. PREVACID [Concomitant]
     Dosage: TOTAL DAILY DOSE: 30 MG  UNIT DOSE: 30 MG
     Route: 048

REACTIONS (2)
  - CHEST DISCOMFORT [None]
  - CHEST PAIN [None]
